FAERS Safety Report 4271778-5 (Version None)
Quarter: 2004Q1

REPORT INFORMATION
  Report Type: 
  Country: None (occurrence: None)
  Receive Date: 20040115
  Receipt Date: 20031029
  Transmission Date: 20041129
  Serious: Yes (Hospitalization)
  Sender: FDA-Public Use
  Company Number: US-GLAXOSMITHKLINE-A0432092A

PATIENT
  Age: 58 Year
  Sex: Female

DRUGS (10)
  1. AVANDAMET [Suspect]
     Indication: DIABETES MELLITUS NON-INSULIN-DEPENDENT
     Route: 048
     Dates: start: 20031003, end: 20031023
  2. POTASSIUM [Concomitant]
  3. PROZAC [Concomitant]
  4. ZAROXOLYN [Concomitant]
  5. FUROSEMIDE [Concomitant]
  6. COUMADIN [Concomitant]
  7. ASPIRIN [Concomitant]
  8. COREG [Concomitant]
  9. SPIRONOLACTONE [Concomitant]
  10. AMBIEN [Concomitant]

REACTIONS (11)
  - DIZZINESS [None]
  - DRY MOUTH [None]
  - DYSGEUSIA [None]
  - DYSPNOEA [None]
  - GLOSSODYNIA [None]
  - HYPOKALAEMIA [None]
  - INTERNATIONAL NORMALISED RATIO DECREASED [None]
  - MEDICATION ERROR [None]
  - PARAESTHESIA ORAL [None]
  - PHOTOSENSITIVITY REACTION [None]
  - RENAL FAILURE [None]
